FAERS Safety Report 11615831 (Version 1)
Quarter: 2015Q4

REPORT INFORMATION
  Report Type: Spontaneous
  Country: JP (occurrence: JP)
  Receive Date: 20151009
  Receipt Date: 20151009
  Transmission Date: 20160304
  Serious: Yes (Other)
  Sender: FDA-Public Use
  Company Number: JP-TEVA-2015-JP-001956J

PATIENT

DRUGS (3)
  1. OLOPATADINE HYDROCHLORIDE OD TABLET 5MG ^TEVA^ [Suspect]
     Active Substance: OLOPATADINE
     Indication: PRODUCT USED FOR UNKNOWN INDICATION
     Route: 065
  2. REMINYL [Concomitant]
     Active Substance: GALANTAMINE
     Route: 048
  3. CERCINE [Concomitant]
     Active Substance: DIAZEPAM
     Route: 048

REACTIONS (1)
  - Delirium [Unknown]
